FAERS Safety Report 5553355-9 (Version None)
Quarter: 2007Q4

REPORT INFORMATION
  Report Type: 
  Country: None (occurrence: None)
  Receive Date: 20071212
  Receipt Date: 20071212
  Transmission Date: 20080405
  Serious: Yes (Hospitalization)
  Sender: FDA-Public Use
  Company Number: None

PATIENT
  Sex: Male
  Weight: 55.3 kg

DRUGS (2)
  1. BEVACIZUMAB [Suspect]
     Indication: COLON CANCER STAGE IV
     Dosage: 284 MG ONCE IV
     Route: 042
     Dates: start: 20071105
  2. FOLFOX [Concomitant]

REACTIONS (2)
  - GASTROINTESTINAL DISORDER [None]
  - PNEUMATOSIS [None]
